FAERS Safety Report 12627144 (Version 4)
Quarter: 2017Q1

REPORT INFORMATION
  Report Type: Report from Study
  Country: JP (occurrence: JP)
  Receive Date: 20160805
  Receipt Date: 20170328
  Transmission Date: 20170428
  Serious: Yes (Death, Hospitalization, Other)
  Sender: FDA-Public Use
  Company Number: JP-B.I. PHARMACEUTICALS,INC./RIDGEFIELD-2015-BI-52680NB

PATIENT
  Age: 81 Year
  Sex: Male
  Weight: 70 kg

DRUGS (2)
  1. BASEN OD [Concomitant]
     Active Substance: VOGLIBOSE
     Indication: TYPE 2 DIABETES MELLITUS
     Route: 048
     Dates: end: 20141207
  2. TRAJENTA [Suspect]
     Active Substance: LINAGLIPTIN
     Indication: TYPE 2 DIABETES MELLITUS
     Route: 048
     Dates: start: 20131216, end: 20141207

REACTIONS (11)
  - Shock haemorrhagic [Fatal]
  - Pneumonia bacterial [Fatal]
  - Duodenal ulcer [Fatal]
  - Cardio-respiratory arrest [Fatal]
  - Renal failure [Fatal]
  - Lower gastrointestinal haemorrhage [Fatal]
  - Anaemia [Fatal]
  - Hypoxia [Fatal]
  - Delirium [Unknown]
  - Cardiac failure [Unknown]
  - Atrial fibrillation [Unknown]

NARRATIVE: CASE EVENT DATE: 20141207
